FAERS Safety Report 18455981 (Version 1)
Quarter: 2020Q4

REPORT INFORMATION
  Report Type: Spontaneous
  Country: US (occurrence: US)
  Receive Date: 20201102
  Receipt Date: 20201102
  Transmission Date: 20210114
  Serious: No
  Sender: FDA-Public Use
  Company Number: US-SA-2020SA303021

PATIENT

DRUGS (2)
  1. SELSUN BLUE [Suspect]
     Active Substance: SELENIUM SULFIDE
  2. DENOREX THERAPEUTIC [Concomitant]
     Active Substance: COAL TAR\MENTHOL

REACTIONS (1)
  - Drug ineffective [Unknown]
